FAERS Safety Report 6916747-9 (Version None)
Quarter: 2010Q3

REPORT INFORMATION
  Report Type: 
  Country: None (occurrence: None)
  Receive Date: 20100810
  Receipt Date: 20100803
  Transmission Date: 20110219
  Serious: Yes (Hospitalization)
  Sender: FDA-Public Use
  Company Number: DE-ROCHE-718938

PATIENT
  Sex: Female

DRUGS (4)
  1. ROACTEMRA [Suspect]
     Indication: POLYARTHRITIS
     Dosage: 4 SEPARATE DOSE. ROUTE: INTRAVENOUS (NOT OTHERWISE SPECIFIED).
     Route: 042
     Dates: start: 20100301, end: 20100501
  2. COLECALCIFEROL [Concomitant]
  3. METHYLPREDNISOLONE ACETATE [Concomitant]
  4. ALENDRONATE SODIUM [Concomitant]
     Dosage: DRUG REPORTED AS: ALENDRONAT

REACTIONS (3)
  - OPTIC NEURITIS [None]
  - VISUAL ACUITY REDUCED [None]
  - VISUAL IMPAIRMENT [None]
